FAERS Safety Report 17496108 (Version 3)
Quarter: 2020Q1

REPORT INFORMATION
  Report Type: Spontaneous
  Country: US (occurrence: US)
  Receive Date: 20200304
  Receipt Date: 20200325
  Transmission Date: 20200409
  Serious: Yes (Hospitalization, Other)
  Sender: FDA-Public Use
  Company Number: US-PFIZER INC-2020095812

PATIENT
  Age: 70 Year
  Sex: Female
  Weight: 115 kg

DRUGS (1)
  1. XELJANZ [Suspect]
     Active Substance: TOFACITINIB CITRATE
     Indication: PROCTITIS ULCERATIVE
     Dosage: 5 MG, 2X/DAY
     Dates: start: 20200219, end: 20200224

REACTIONS (4)
  - Pyrexia [Recovering/Resolving]
  - Clostridium difficile infection [Recovering/Resolving]
  - Body temperature decreased [Recovering/Resolving]
  - Fatigue [Recovering/Resolving]
